FAERS Safety Report 9279370 (Version 2)
Quarter: 2013Q2

REPORT INFORMATION
  Report Type: Spontaneous
  Country: US (occurrence: US)
  Receive Date: 20130508
  Receipt Date: 20130514
  Transmission Date: 20140414
  Serious: Yes (Other)
  Sender: FDA-Public Use
  Company Number: US-ALLERGAN-1303311US

PATIENT
  Age: 76 Year
  Sex: Female

DRUGS (3)
  1. COMBIGAN[R] [Suspect]
     Indication: OPEN ANGLE GLAUCOMA
     Dosage: 1 GTT, BID
     Route: 047
     Dates: start: 20110425, end: 20130215
  2. METOPROLOL [Concomitant]
     Indication: PRODUCT USED FOR UNKNOWN INDICATION
  3. NIACIN [Concomitant]
     Indication: PRODUCT USED FOR UNKNOWN INDICATION

REACTIONS (7)
  - Iridocyclitis [Recovered/Resolved]
  - Hypersensitivity [Recovered/Resolved]
  - Erythema [Recovered/Resolved]
  - Corneal deposits [Recovered/Resolved]
  - Iritis [Recovered/Resolved]
  - Ocular hyperaemia [Recovered/Resolved]
  - Eye irritation [Recovered/Resolved]
